FAERS Safety Report 18680598 (Version 3)
Quarter: 2021Q1

REPORT INFORMATION
  Report Type: Spontaneous
  Country: US (occurrence: US)
  Receive Date: 20201229
  Receipt Date: 20210105
  Transmission Date: 20210419
  Serious: Yes (Death, Life-Threatening, Other)
  Sender: FDA-Public Use
  Company Number: US-PFIZER INC-2020513039

PATIENT
  Age: 80 Year
  Sex: Male

DRUGS (1)
  1. FLUCONAZOLE. [Suspect]
     Active Substance: FLUCONAZOLE
     Indication: HYPERAESTHESIA
     Dosage: 200 MG, WEEKLY

REACTIONS (5)
  - Hepatic encephalopathy [Unknown]
  - Coagulopathy [Unknown]
  - Off label use [Unknown]
  - Acute hepatic failure [Fatal]
  - Rash [Unknown]
